FAERS Safety Report 9301364 (Version 1)
Quarter: 2013Q2

REPORT INFORMATION
  Report Type: Spontaneous
  Country: US (occurrence: US)
  Receive Date: 20130521
  Receipt Date: 20130521
  Transmission Date: 20140414
  Serious: No
  Sender: FDA-Public Use
  Company Number: US-009507513-1305USA012271

PATIENT
  Sex: Female

DRUGS (1)
  1. ZEGERID OTC CAPSULES [Suspect]
     Indication: DYSPEPSIA
     Dosage: 20 MG, QPM
     Route: 048
     Dates: start: 20130417

REACTIONS (1)
  - Inappropriate schedule of drug administration [Unknown]
